FAERS Safety Report 16393894 (Version 1)
Quarter: 2019Q2

REPORT INFORMATION
  Report Type: Spontaneous
  Country: UA (occurrence: UA)
  Receive Date: 20190605
  Receipt Date: 20190605
  Transmission Date: 20190711
  Serious: Yes (Hospitalization)
  Sender: FDA-Public Use
  Company Number: UA-ASTRAZENECA-2019SE81162

PATIENT
  Sex: Female

DRUGS (4)
  1. PULMICORT TURBUHALER [Suspect]
     Active Substance: BUDESONIDE
     Indication: ASTHMA
     Dosage: 25.0UG UNKNOWN
     Route: 055
     Dates: start: 20190525, end: 20190529
  2. VENTOLINE [Concomitant]
     Active Substance: ALBUTEROL
  3. SALINE [Concomitant]
     Active Substance: SODIUM CHLORIDE
  4. SYMBICORT [Suspect]
     Active Substance: BUDESONIDE\FORMOTEROL FUMARATE DIHYDRATE
     Indication: ASTHMA
     Dosage: 160/4.5 UG UNKNOWN UNKNOWN
     Route: 055
     Dates: start: 20190525, end: 20190529

REACTIONS (1)
  - Seizure [Unknown]

NARRATIVE: CASE EVENT DATE: 20190529
